FAERS Safety Report 7641694-7 (Version None)
Quarter: 2011Q3

REPORT INFORMATION
  Report Type: 
  Country: None (occurrence: None)
  Receive Date: 20110728
  Receipt Date: 20110723
  Transmission Date: 20111222
  Serious: Yes (Other)
  Sender: FDA-Public Use
  Company Number: FR-GLAXOSMITHKLINE-B0735037A

PATIENT
  Age: 12 Year
  Sex: Female

DRUGS (1)
  1. MALARONE [Suspect]
     Indication: PROPHYLAXIS
     Route: 048
     Dates: start: 20110701, end: 20110701

REACTIONS (3)
  - OCULAR ICTERUS [None]
  - DIARRHOEA [None]
  - PYREXIA [None]
